FAERS Safety Report 23390722 (Version 1)
Quarter: 2024Q1

REPORT INFORMATION
  Report Type: Other
  Country: US (occurrence: US)
  Receive Date: 20240111
  Receipt Date: 20240111
  Transmission Date: 20240410
  Serious: Yes (Hospitalization, Other)
  Sender: FDA-Public Use
  Company Number: US-drreddys-SPO/USA/23/0183435

PATIENT
  Age: 36 Year
  Sex: Female

DRUGS (17)
  1. FENTANYL [Suspect]
     Active Substance: FENTANYL\FENTANYL CITRATE
     Indication: Product used for unknown indication
  2. NALOXONE [Suspect]
     Active Substance: NALOXONE
     Indication: Nausea
  3. BUPRENORPHINE\NALOXONE [Suspect]
     Active Substance: BUPRENORPHINE\NALOXONE
     Indication: Drug use disorder
     Route: 060
  4. BUPRENORPHINE\NALOXONE [Suspect]
     Active Substance: BUPRENORPHINE\NALOXONE
     Route: 060
  5. BUPRENORPHINE\NALOXONE [Suspect]
     Active Substance: BUPRENORPHINE\NALOXONE
     Route: 060
  6. ONDANSETRON [Suspect]
     Active Substance: ONDANSETRON
     Indication: Nausea
  7. OXYCODONE [Suspect]
     Active Substance: OXYCODONE
     Indication: Drug use disorder
  8. OXYCODONE [Suspect]
     Active Substance: OXYCODONE
  9. OXYCODONE [Suspect]
     Active Substance: OXYCODONE
  10. OXYCODONE [Suspect]
     Active Substance: OXYCODONE
  11. OXYCODONE [Suspect]
     Active Substance: OXYCODONE
  12. OXYCODONE [Suspect]
     Active Substance: OXYCODONE
  13. OXYCODONE [Suspect]
     Active Substance: OXYCODONE
  14. HYDROMORPHONE [Suspect]
     Active Substance: HYDROMORPHONE
     Indication: Drug use disorder
     Route: 042
  15. BUPRENORPHINE\NALOXONE [Suspect]
     Active Substance: BUPRENORPHINE\NALOXONE
     Indication: Drug use disorder
     Dosage: FOUR DOSES
     Route: 042
  16. BUPRENORPHINE\NALOXONE [Suspect]
     Active Substance: BUPRENORPHINE\NALOXONE
     Route: 042
  17. BUPRENORPHINE\NALOXONE [Suspect]
     Active Substance: BUPRENORPHINE\NALOXONE
     Dosage: FOUR DOSES
     Route: 042

REACTIONS (2)
  - Drug use disorder [Not Recovered/Not Resolved]
  - Exposure during pregnancy [Unknown]
